APPROVED DRUG PRODUCT: PERCODAN-DEMI
Active Ingredient: ASPIRIN; OXYCODONE HYDROCHLORIDE; OXYCODONE TEREPHTHALATE
Strength: 325MG;2.25MG;0.19MG **Federal Register determination that product was not discontinued or withdrawn for safety or effectiveness reasons**
Dosage Form/Route: TABLET;ORAL
Application: N007337 | Product #005
Applicant: ENDO OPERATIONS LTD
Approved: Approved Prior to Jan 1, 1982 | RLD: No | RS: No | Type: DISCN